FAERS Safety Report 7129135-X (Version None)
Quarter: 2010Q4

REPORT INFORMATION
  Report Type: 
  Country: None (occurrence: None)
  Receive Date: 20101130
  Receipt Date: 20101122
  Transmission Date: 20110411
  Serious: Yes (Hospitalization)
  Sender: FDA-Public Use
  Company Number: CHPA2010US17963

PATIENT
  Sex: Female

DRUGS (1)
  1. VOLTAREN [Suspect]
     Dosage: UNK, ONCE/SINGLE
     Route: 048
     Dates: start: 20101101, end: 20101101

REACTIONS (3)
  - ACCIDENTAL EXPOSURE [None]
  - DEHYDRATION [None]
  - URINARY TRACT INFECTION [None]
